FAERS Safety Report 5843248-1 (Version None)
Quarter: 2008Q3

REPORT INFORMATION
  Report Type: 
  Country: None (occurrence: None)
  Receive Date: 20080813
  Receipt Date: 20080806
  Transmission Date: 20090109
  Serious: Yes (Hospitalization, Other)
  Sender: FDA-Public Use
  Company Number: PHNU2008DE01556

PATIENT
  Age: 64 Year
  Sex: Male

DRUGS (6)
  1. RASILEZ [Suspect]
     Indication: HYPERTENSION
     Dates: start: 20071220, end: 20080101
  2. RASILEZ [Suspect]
     Dosage: 300 MG/DAY
     Dates: start: 20080205
  3. DILTAHEXAL [Concomitant]
  4. DIOVAN HCT [Concomitant]
  5. CLONIDINE [Concomitant]
  6. TORSEMIDE [Concomitant]

REACTIONS (5)
  - ALANINE AMINOTRANSFERASE INCREASED [None]
  - ASPARTATE AMINOTRANSFERASE INCREASED [None]
  - GAMMA-GLUTAMYLTRANSFERASE INCREASED [None]
  - HOSPITALISATION [None]
  - LIVER FUNCTION TEST ABNORMAL [None]
